FAERS Safety Report 9706498 (Version 2)
Quarter: 2013Q4

REPORT INFORMATION
  Report Type: Spontaneous
  Country: BR (occurrence: BR)
  Receive Date: 20131125
  Receipt Date: 20131125
  Transmission Date: 20140711
  Serious: Yes (Other)
  Sender: FDA-Public Use
  Company Number: BR-ROCHE-1302997

PATIENT
  Sex: Male
  Weight: 77 kg

DRUGS (9)
  1. RIVOTRIL [Suspect]
     Indication: PRODUCT USED FOR UNKNOWN INDICATION
     Route: 065
  2. RIVOTRIL [Suspect]
     Route: 065
     Dates: start: 200503
  3. ATENOLOL [Concomitant]
     Indication: HYPERTENSION
     Route: 065
  4. LIPOSTAT [Concomitant]
     Indication: BLOOD CHOLESTEROL INCREASED
     Route: 065
  5. TOFRANIL [Concomitant]
     Indication: DEPRESSION
     Route: 065
  6. LYRICA [Concomitant]
     Indication: DEPRESSION
     Route: 065
  7. CARBOLITIUM [Concomitant]
     Indication: DEPRESSION
     Route: 065
  8. OMEPRAZOLE [Concomitant]
  9. MIRTAZAPINE [Concomitant]
     Route: 065

REACTIONS (1)
  - Diabetes mellitus [Recovering/Resolving]
